FAERS Safety Report 8607928-7 (Version None)
Quarter: 2012Q3

REPORT INFORMATION
  Report Type: 
  Country: None (occurrence: None)
  Receive Date: 20120803
  Receipt Date: 20120731
  Transmission Date: 20120928
  Serious: Yes (Other)
  Sender: FDA-Public Use
  Company Number: 2012032957

PATIENT
  Sex: Female
  Weight: 46.7205 kg

DRUGS (3)
  1. AUGMENTIN (AUGEMENTIN /00756801/) [Concomitant]
  2. HIZENTRA [Suspect]
     Indication: IMMUNODEFICIENCY COMMON VARIABLE
     Dosage: 25 ML 1X/WEEK, SUBCUTANEOUS; 25 ML 1X, SUBCUTANEOUS
     Route: 058
     Dates: start: 20100701, end: 20110901
  3. HIZENTRA [Suspect]
     Indication: IMMUNODEFICIENCY COMMON VARIABLE
     Dosage: 25 ML 1X/WEEK, SUBCUTANEOUS; 25 ML 1X, SUBCUTANEOUS
     Route: 058
     Dates: start: 20111101

REACTIONS (1)
  - THROMBOCYTOPENIA [None]
